FAERS Safety Report 7347569-5 (Version None)
Quarter: 2011Q1

REPORT INFORMATION
  Report Type: 
  Country: None (occurrence: None)
  Receive Date: 20110311
  Receipt Date: 20110225
  Transmission Date: 20110831
  Serious: Yes (Other)
  Sender: FDA-Public Use
  Company Number: PHHY2011JP18264

PATIENT
  Sex: Male

DRUGS (4)
  1. PREDNISOLONE [Suspect]
     Dosage: 12.5 MG, DAILY
  2. WARFARIN [Concomitant]
  3. PREDNISOLONE [Suspect]
     Indication: ARTHRALGIA
     Dosage: 10 TO 15 MG/DAY
  4. AMLODIPINE [Concomitant]
     Dosage: 5 MG, DAILY

REACTIONS (24)
  - INTESTINAL ANGINA [None]
  - MESENTERIC OCCLUSION [None]
  - ARTERIOSCLEROSIS [None]
  - ANTIPHOSPHOLIPID ANTIBODIES POSITIVE [None]
  - DIARRHOEA [None]
  - DNA ANTIBODY POSITIVE [None]
  - CEREBRAL INFARCTION [None]
  - PERITONITIS [None]
  - ABDOMINAL PAIN UPPER [None]
  - NUCLEAR MAGNETIC RESONANCE IMAGING BRAIN ABNORMAL [None]
  - CARDIOLIPIN ANTIBODY POSITIVE [None]
  - ANAEMIA [None]
  - C-REACTIVE PROTEIN INCREASED [None]
  - GASTRIC PERFORATION [None]
  - BLOOD CHOLESTEROL INCREASED [None]
  - PULSE WAVEFORM ABNORMAL [None]
  - HYPOALBUMINAEMIA [None]
  - ANTINUCLEAR ANTIBODY INCREASED [None]
  - COELIAC ARTERY OCCLUSION [None]
  - BLOOD TRIGLYCERIDES INCREASED [None]
  - WEIGHT DECREASED [None]
  - CACHEXIA [None]
  - DECREASED APPETITE [None]
  - ACTIVATED PARTIAL THROMBOPLASTIN TIME PROLONGED [None]
